FAERS Safety Report 9884762 (Version 2)
Quarter: 2014Q1

REPORT INFORMATION
  Report Type: Report from Study
  Country: DE (occurrence: DE)
  Receive Date: 20140210
  Receipt Date: 20140210
  Transmission Date: 20141002
  Serious: Yes (Other)
  Sender: FDA-Public Use
  Company Number: DE-ABBVIE-13P-062-1042691-00

PATIENT
  Sex: Female

DRUGS (4)
  1. HUMIRA [Suspect]
     Indication: CROHN^S DISEASE
     Route: 058
     Dates: start: 20120724
  2. HUMIRA [Suspect]
     Route: 058
     Dates: start: 201306
  3. HUMIRA [Suspect]
     Route: 058
     Dates: end: 201401
  4. HUMIRA [Suspect]
     Route: 058

REACTIONS (3)
  - Large intestinal haemorrhage [Recovered/Resolved]
  - Haemorrhage [Recovering/Resolving]
  - Crohn^s disease [Recovered/Resolved]
